FAERS Safety Report 7659789-0 (Version None)
Quarter: 2011Q3

REPORT INFORMATION
  Report Type: 
  Country: None (occurrence: None)
  Receive Date: 20110802
  Receipt Date: 20110725
  Transmission Date: 20111222
  Serious: Yes (Other)
  Sender: FDA-Public Use
  Company Number: 2011SP034865

PATIENT
  Age: 35 Year
  Sex: Male

DRUGS (1)
  1. REMERON [Suspect]
     Indication: SLEEP DISORDER
     Dosage: 15 MG;HS; 45 MG;HS; 30 MG;HS;

REACTIONS (14)
  - LYMPHADENOPATHY [None]
  - INSOMNIA [None]
  - RENAL PAIN [None]
  - ABDOMINAL DISTENSION [None]
  - HYPOPHAGIA [None]
  - RENAL DISORDER [None]
  - PAINFUL DEFAECATION [None]
  - DYSPNOEA [None]
  - WEIGHT INCREASED [None]
  - ABDOMINAL MASS [None]
  - SWEAT DISCOLOURATION [None]
  - DYSURIA [None]
  - DECREASED APPETITE [None]
  - PAIN [None]
